FAERS Safety Report 10052508 (Version 2)
Quarter: 2014Q2

REPORT INFORMATION
  Report Type: Spontaneous
  Country: IT (occurrence: IT)
  Receive Date: 20140402
  Receipt Date: 20140403
  Transmission Date: 20141212
  Serious: Yes (Other)
  Sender: FDA-Public Use
  Company Number: IT-OTSUKA-US-2014-10627

PATIENT
  Age: 6 Year
  Sex: Male

DRUGS (2)
  1. BUSULFEX [Suspect]
     Indication: BONE MARROW TRANSPLANT
     Dosage: UNK
     Route: 065
  2. CYCLOPHOSPHAMIDE [Suspect]
     Indication: BONE MARROW TRANSPLANT
     Dosage: UNK
     Route: 065

REACTIONS (10)
  - Hypodontia [Recovering/Resolving]
  - Tooth development disorder [Recovering/Resolving]
  - Tooth hypoplasia [Recovering/Resolving]
  - Tooth malformation [Recovering/Resolving]
  - Hypertonia [Recovering/Resolving]
  - Jaw disorder [Unknown]
  - Developmental delay [Unknown]
  - Epidermal naevus [Unknown]
  - Left ventricular failure [Unknown]
  - Upper respiratory tract infection [Unknown]
